FAERS Safety Report 4368392-X (Version None)
Quarter: 2004Q2

REPORT INFORMATION
  Report Type: 
  Country: None (occurrence: None)
  Receive Date: 20040602
  Receipt Date: 20040601
  Transmission Date: 20050107
  Serious: Yes (Other)
  Sender: FDA-Public Use
  Company Number: US-GLAXOSMITHKLINE-A0512890A

PATIENT
  Age: 49 Year
  Sex: Male

DRUGS (3)
  1. WELLBUTRIN [Suspect]
     Indication: ANXIETY
     Dosage: 150MG PER DAY
     Route: 048
     Dates: start: 20040524
  2. VIOXX [Concomitant]
  3. EFFEXOR XR [Concomitant]

REACTIONS (5)
  - DYSKINESIA [None]
  - HALLUCINATION [None]
  - INSOMNIA [None]
  - PARAESTHESIA [None]
  - TINNITUS [None]
